FAERS Safety Report 26053510 (Version 1)
Quarter: 2025Q4

REPORT INFORMATION
  Report Type: Report from Study
  Country: CA (occurrence: CA)
  Receive Date: 20251117
  Receipt Date: 20251117
  Transmission Date: 20260117
  Serious: Yes (Hospitalization)
  Sender: TEVA
  Company Number: CA-TEVA-VS-3392507

PATIENT
  Age: 70 Year
  Sex: Female
  Weight: 83 kg

DRUGS (12)
  1. PACLITAXEL [Suspect]
     Active Substance: PACLITAXEL
     Indication: HER2 negative breast cancer
     Dosage: DOSE FORM: LIQUID INTRAVENOUS, ROUTE OF ADMINISTRATION: OTHER
     Route: 065
  2. PANTOPRAZOLE [Concomitant]
     Active Substance: PANTOPRAZOLE
     Indication: Prophylaxis
     Dosage: ROUTE OF ADMINISTRATION: OTHER
     Route: 065
  3. PEMBROLIZUMAB [Suspect]
     Active Substance: PEMBROLIZUMAB
     Indication: HER2 negative breast cancer
     Dosage: ROUTE OF ADMINISTRATION: OTHER
     Route: 065
  4. CAPECITABINE [Suspect]
     Active Substance: CAPECITABINE
     Indication: HER2 negative breast cancer
     Dosage: DOSE FORM: NOT SPECIFIED, ROUTE OF ADMINISTRATION: OTHER
     Route: 065
  5. DOXORUBICIN [Suspect]
     Active Substance: DOXORUBICIN
     Indication: HER2 negative breast cancer
     Dosage: ROUTE OF ADMINISTRATION: OTHER
     Route: 065
  6. DOXORUBICIN [Suspect]
     Active Substance: DOXORUBICIN
     Indication: HER2 negative breast cancer
     Dosage: ROUTE OF ADMINISTRATION: OTHER
     Route: 065
  7. POLYETHYLENE GLYCOL 3350 [Concomitant]
     Active Substance: POLYETHYLENE GLYCOL 3350
     Indication: Constipation
     Dosage: ROUTE OF ADMINISTRATION: OTHER
     Route: 065
  8. CARBOPLATIN [Suspect]
     Active Substance: CARBOPLATIN
     Indication: HER2 negative breast cancer
     Dosage: DOSE FORM: SOLUTION INTRAVENOUS, ROUTE OF ADMINISTRATION: OTHER
     Route: 065
  9. CYCLOPHOSPHAMIDE [Suspect]
     Active Substance: CYCLOPHOSPHAMIDE
     Indication: HER2 negative breast cancer
     Dosage: DOSE FORM: NOT SPECIFIED, ROUTE OF ADMINISTRATION: OTHER
     Route: 065
  10. CYCLOPHOSPHAMIDE [Suspect]
     Active Substance: CYCLOPHOSPHAMIDE
     Indication: HER2 negative breast cancer
     Dosage: ROUTE OF ADMINISTRATION: OTHER
     Route: 065
  11. HYDROCORTISONE [Concomitant]
     Active Substance: HYDROCORTISONE
     Indication: Adrenal insufficiency
     Dosage: DOSE FORM: NOT SPECIFIED, ROUTE OF ADMINISTRATION: OTHER
     Route: 065
  12. OLANZAPINE [Concomitant]
     Active Substance: OLANZAPINE
     Indication: Adrenal insufficiency
     Dosage: DOSE FORM: NOT SPECIFIED, ROUTE OF ADMINISTRATION: OTHER
     Route: 065

REACTIONS (1)
  - Sepsis [Recovered/Resolved]
